FAERS Safety Report 19879484 (Version 1)
Quarter: 2021Q3

REPORT INFORMATION
  Report Type: Spontaneous
  Country: US (occurrence: US)
  Receive Date: 20210924
  Receipt Date: 20210924
  Transmission Date: 20211014
  Serious: No
  Sender: FDA-Public Use
  Company Number: None

PATIENT
  Age: 59 Year
  Sex: Female
  Weight: 45 kg

DRUGS (10)
  1. VITAMIN [Concomitant]
     Active Substance: VITAMINS
  2. DIGESTINES [Concomitant]
  3. VYEPTI [Suspect]
     Active Substance: EPTINEZUMAB-JJMR
     Indication: MIGRAINE
     Dosage: OTHER FREQUENCY:QUARTERLY;?
     Route: 042
     Dates: start: 20210608
  4. LITHIUM. [Concomitant]
     Active Substance: LITHIUM
  5. VITAMIN D [Concomitant]
     Active Substance: VITAMIN D NOS
  6. ATIVAN [Concomitant]
     Active Substance: LORAZEPAM
  7. BIOTIN [Concomitant]
     Active Substance: BIOTIN
  8. VITAMIN BCOMEX [Concomitant]
  9. SOM ACTIVE [Concomitant]
  10. MAGNESION [Concomitant]

REACTIONS (2)
  - Alopecia [None]
  - Madarosis [None]

NARRATIVE: CASE EVENT DATE: 20210913
